FAERS Safety Report 7385379-3 (Version None)
Quarter: 2011Q1

REPORT INFORMATION
  Report Type: 
  Country: None (occurrence: None)
  Receive Date: 20110330
  Receipt Date: 20110104
  Transmission Date: 20110831
  Serious: Yes (Hospitalization, Other)
  Sender: FDA-Public Use
  Company Number: US-MYLANLABS-2010S1022840

PATIENT
  Age: 52 Year
  Sex: Female

DRUGS (6)
  1. LAMICTAL [Concomitant]
  2. EMSAM [Suspect]
     Indication: DEPRESSION
     Dosage: CHANGED Q24H
     Route: 062
     Dates: start: 20101201, end: 20101201
  3. EMSAM [Suspect]
     Route: 062
     Dates: start: 20101201, end: 20101201
  4. SEROQUEL [Concomitant]
  5. EMSAM [Suspect]
     Route: 062
     Dates: start: 20101201
  6. LITHIUM [Concomitant]

REACTIONS (4)
  - HYPOTENSION [None]
  - ORTHOSTATIC HYPOTENSION [None]
  - DIZZINESS [None]
  - BLOOD PRESSURE DECREASED [None]
